FAERS Safety Report 16964678 (Version 1)
Quarter: 2019Q4

REPORT INFORMATION
  Report Type: Spontaneous
  Country: FR (occurrence: FR)
  Receive Date: 20191028
  Receipt Date: 20191028
  Transmission Date: 20200122
  Serious: Yes (Hospitalization)
  Sender: FDA-Public Use
  Company Number: FR-BEH-2019108359

PATIENT
  Age: 14 Year
  Sex: Female
  Weight: 39 kg

DRUGS (1)
  1. PRIVIGEN [Suspect]
     Active Substance: HUMAN IMMUNOGLOBULIN G
     Indication: HUMORAL IMMUNE DEFECT
     Dosage: 9 GRAM, TOT
     Route: 040
     Dates: start: 20190930

REACTIONS (2)
  - Incorrect drug administration rate [Unknown]
  - Headache [Unknown]

NARRATIVE: CASE EVENT DATE: 20190930
